FAERS Safety Report 21141517 (Version 2)
Quarter: 2022Q3

REPORT INFORMATION
  Report Type: Spontaneous
  Country: AU (occurrence: AU)
  Receive Date: 20220728
  Receipt Date: 20220902
  Transmission Date: 20221027
  Serious: Yes (Other)
  Sender: FDA-Public Use
  Company Number: AU-PFIZER INC-202200997134

PATIENT
  Sex: Female

DRUGS (2)
  1. ENBREL [Interacting]
     Active Substance: ETANERCEPT
     Indication: Product used for unknown indication
     Dosage: UNK
     Route: 065
  2. COMIRNATY [Interacting]
     Active Substance: TOZINAMERAN
     Indication: COVID-19 immunisation
     Dosage: DOSE 4 (BOOSTER), SINGLE
     Route: 065

REACTIONS (7)
  - Off label use [Unknown]
  - Immunisation [Unknown]
  - Drug interaction [Unknown]
  - Rheumatoid arthritis [Unknown]
  - Drug ineffective [Unknown]
  - Groin pain [Unknown]
  - Peripheral swelling [Unknown]
